FAERS Safety Report 18006275 (Version 1)
Quarter: 2020Q3

REPORT INFORMATION
  Report Type: Spontaneous
  Country: US (occurrence: US)
  Receive Date: 20200709
  Receipt Date: 20200709
  Transmission Date: 20201103
  Serious: No
  Sender: FDA-Public Use
  Company Number: None

PATIENT

DRUGS (2)
  1. GABAPENTIN GABAPENTIN IMMEDIATE RELEASE [Suspect]
     Active Substance: GABAPENTIN
  2. GRALISE [Suspect]
     Active Substance: GABAPENTIN
     Route: 048

REACTIONS (3)
  - Product dispensing error [None]
  - Product name confusion [None]
  - Product label confusion [None]
